FAERS Safety Report 9695211 (Version 1)
Quarter: 2013Q4

REPORT INFORMATION
  Report Type: Spontaneous
  Country: FR (occurrence: FR)
  Receive Date: 20131119
  Receipt Date: 20131119
  Transmission Date: 20140711
  Serious: Yes (Other)
  Sender: FDA-Public Use
  Company Number: FR-ASTRAZENECA-2013SE84037

PATIENT
  Age: 26930 Day
  Sex: Female

DRUGS (4)
  1. XEROQUEL [Suspect]
     Route: 048
     Dates: start: 201307, end: 20131014
  2. SEROPLEX [Concomitant]
     Indication: BIPOLAR DISORDER
  3. TERALITHE [Concomitant]
     Indication: BIPOLAR DISORDER
  4. NUCTALON [Concomitant]
     Indication: BIPOLAR DISORDER

REACTIONS (1)
  - Hepatitis cholestatic [Recovering/Resolving]
